FAERS Safety Report 4456806-6 (Version None)
Quarter: 2004Q3

REPORT INFORMATION
  Report Type: 
  Country: None (occurrence: None)
  Receive Date: 20040921
  Receipt Date: 20040907
  Transmission Date: 20050211
  Serious: Yes (Other)
  Sender: FDA-Public Use
  Company Number: 8849

PATIENT
  Sex: Male

DRUGS (9)
  1. METHOBLASTIN [Suspect]
     Dosage: 12.5 MG
     Route: 065
  2. METHOBLASTIN [Suspect]
     Dosage: 20 MG
     Route: 065
  3. ANAKINRA [Suspect]
     Indication: RHEUMATOID ARTHRITIS
     Dosage: NI
  4. PREDNISOLONE [Concomitant]
  5. METFORMIN HCL [Concomitant]
  6. LOSEC [Concomitant]
  7. SEROTIDE MITE [Concomitant]
  8. VENTOLIN [Concomitant]
  9. ZYLOPRIM [Concomitant]

REACTIONS (1)
  - CARDIAC FAILURE [None]
